FAERS Safety Report 6691384-2 (Version None)
Quarter: 2010Q2

REPORT INFORMATION
  Report Type: 
  Country: None (occurrence: None)
  Receive Date: 20100416
  Receipt Date: 20100406
  Transmission Date: 20101027
  Serious: Yes (Hospitalization)
  Sender: FDA-Public Use
  Company Number: 2010BM000093

PATIENT
  Age: 4 Year
  Sex: Male
  Weight: 26 kg

DRUGS (1)
  1. NAGLAZYME [Suspect]
     Indication: VIRAL INFECTION
     Dosage: 4 VIALS;QW;IVDRP
     Route: 041
     Dates: start: 20080916

REACTIONS (2)
  - DEVICE RELATED INFECTION [None]
  - LUNG INFECTION [None]
